FAERS Safety Report 13586025 (Version 1)
Quarter: 2017Q2

REPORT INFORMATION
  Report Type: Spontaneous
  Country: US (occurrence: US)
  Receive Date: 20170526
  Receipt Date: 20170526
  Transmission Date: 20170830
  Serious: Yes (Other)
  Sender: FDA-Public Use
  Company Number: None

PATIENT
  Age: 29 Year
  Sex: Male
  Weight: 62.1 kg

DRUGS (1)
  1. RITUXAN [Suspect]
     Active Substance: RITUXIMAB
     Indication: MULTIPLE SCLEROSIS
     Dosage: FREQUENCY - Q6 MONTHS
     Route: 042
     Dates: start: 20170512

REACTIONS (3)
  - Infusion related reaction [None]
  - Pruritus [None]
  - Ear discomfort [None]

NARRATIVE: CASE EVENT DATE: 20170512
